FAERS Safety Report 6684853-2 (Version None)
Quarter: 2010Q2

REPORT INFORMATION
  Report Type: 
  Country: None (occurrence: None)
  Receive Date: 20100416
  Receipt Date: 20100413
  Transmission Date: 20101027
  Serious: Yes (Other)
  Sender: FDA-Public Use
  Company Number: DE-BRISTOL-MYERS SQUIBB COMPANY-15061476

PATIENT
  Age: 68 Year
  Sex: Female
  Weight: 85 kg

DRUGS (4)
  1. ABILIFY [Suspect]
     Dosage: 1 TABLET
  2. CLOZAPINE [Suspect]
     Dosage: 1TABLET
  3. DOCITON [Suspect]
     Dosage: 1 TABLET
  4. LEVOTHYROXINE SODIUM [Suspect]
     Dosage: 1 TABLET

REACTIONS (3)
  - ACCIDENTAL EXPOSURE [None]
  - HYPOTENSION [None]
  - SYNCOPE [None]
